FAERS Safety Report 8000248-3 (Version None)
Quarter: 2011Q4

REPORT INFORMATION
  Report Type: 
  Country: None (occurrence: None)
  Receive Date: 20111123
  Receipt Date: 20111012
  Transmission Date: 20120403
  Serious: Yes (Hospitalization)
  Sender: FDA-Public Use
  Company Number: 337412

PATIENT
  Age: 55 Year
  Sex: Female
  Weight: 109.3 kg

DRUGS (4)
  1. ACTOS [Concomitant]
  2. VICTOZA [Suspect]
     Indication: TYPE 2 DIABETES MELLITUS
     Dosage: 1.8 MG, QD, SUBCUTANEOUS
     Route: 058
     Dates: start: 20101116, end: 20111006
  3. LIPITOR [Concomitant]
  4. LANTUS [Concomitant]

REACTIONS (2)
  - PANCREATITIS [None]
  - WEIGHT DECREASED [None]
